FAERS Safety Report 15568829 (Version 2)
Quarter: 2021Q1

REPORT INFORMATION
  Report Type: Spontaneous
  Country: US (occurrence: US)
  Receive Date: 20181031
  Receipt Date: 20210106
  Transmission Date: 20210419
  Serious: No
  Sender: FDA-Public Use
  Company Number: US-BIOGEN-2018BI00651854

PATIENT
  Age: 58 Year
  Sex: Female

DRUGS (3)
  1. VITAMIN C [Concomitant]
     Active Substance: ASCORBIC ACID
     Route: 065
  2. TECFIDERA [Suspect]
     Active Substance: DIMETHYL FUMARATE
     Indication: MULTIPLE SCLEROSIS
     Route: 050
     Dates: start: 2008
  3. OMEPRAZOLE. [Concomitant]
     Active Substance: OMEPRAZOLE
     Route: 065

REACTIONS (4)
  - Gastric disorder [Unknown]
  - Product dose omission issue [Recovered/Resolved with Sequelae]
  - Hot flush [Recovered/Resolved with Sequelae]
  - Flushing [Unknown]

NARRATIVE: CASE EVENT DATE: 20181025
